FAERS Safety Report 6342127-3 (Version None)
Quarter: 2009Q3

REPORT INFORMATION
  Report Type: 
  Country: None (occurrence: None)
  Receive Date: 20090904
  Receipt Date: 20090904
  Transmission Date: 20100115
  Serious: Yes (Hospitalization, Other)
  Sender: FDA-Public Use
  Company Number: None

PATIENT
  Age: 72 Year
  Sex: Female
  Weight: 61.2356 kg

DRUGS (2)
  1. CELEBREX [Suspect]
     Indication: OSTEOARTHRITIS
     Dosage: 200 MG ONE A DAY PO
     Route: 048
     Dates: start: 20090729, end: 20090825
  2. CELEBREX [Suspect]
     Indication: PAIN
     Dosage: 200 MG ONE A DAY PO
     Route: 048
     Dates: start: 20090729, end: 20090825

REACTIONS (2)
  - NEPHROLITHIASIS [None]
  - URINARY TRACT INFECTION [None]
